FAERS Safety Report 25602795 (Version 1)
Quarter: 2025Q3

REPORT INFORMATION
  Report Type: Report from Study
  Country: US (occurrence: US)
  Receive Date: 20250724
  Receipt Date: 20250724
  Transmission Date: 20251021
  Serious: Yes (Hospitalization, Other)
  Sender: ALEXION PHARMACEUTICALS
  Company Number: US-ASTRAZENECA-202507GLO013644US

PATIENT
  Age: 70 Year
  Sex: Male
  Weight: 87.075 kg

DRUGS (19)
  1. ESOMEPRAZOLE [Interacting]
     Active Substance: ESOMEPRAZOLE
     Dosage: 1 DOSAGE FORM, QD
     Route: 065
  2. RECORLEV [Interacting]
     Active Substance: LEVOKETOCONAZOLE
     Indication: Cushing^s syndrome
     Dosage: 150 MILLIGRAM, BID
     Dates: start: 20240829, end: 20240930
  3. RECORLEV [Interacting]
     Active Substance: LEVOKETOCONAZOLE
     Dosage: 450 MILLIGRAM, QD
     Dates: start: 202410, end: 2024
  4. RECORLEV [Interacting]
     Active Substance: LEVOKETOCONAZOLE
     Dosage: 150 MILLIGRAM, QD
     Dates: start: 2024, end: 2024
  5. RECORLEV [Interacting]
     Active Substance: LEVOKETOCONAZOLE
     Dosage: 300 MILLIGRAM, QD
     Dates: start: 2024, end: 2024
  6. RECORLEV [Interacting]
     Active Substance: LEVOKETOCONAZOLE
     Dosage: 300 MILLIGRAM, BID
     Dates: start: 20250124, end: 20250216
  7. RECORLEV [Interacting]
     Active Substance: LEVOKETOCONAZOLE
     Dosage: 450 MILLIGRAM, BID
     Dates: start: 20250217, end: 20250413
  8. RECORLEV [Interacting]
     Active Substance: LEVOKETOCONAZOLE
     Dosage: 600 MILLIGRAM, BID
     Dates: start: 20250414, end: 2025
  9. RECORLEV [Interacting]
     Active Substance: LEVOKETOCONAZOLE
     Dosage: 600 MILLIGRAM, BID
     Dates: start: 2025
  10. METOPROLOL [Concomitant]
     Active Substance: METOPROLOL
     Route: 065
  11. ELIQUIS [Concomitant]
     Active Substance: APIXABAN
     Route: 065
  12. CLONAZEPAM [Concomitant]
     Active Substance: CLONAZEPAM
     Route: 065
  13. VITAMINS [Concomitant]
     Active Substance: VITAMINS
     Route: 065
  14. VITAMIN C [Concomitant]
     Active Substance: ASCORBIC ACID
     Route: 065
  15. VITAMIN D [Concomitant]
     Active Substance: VITAMIN D NOS
  16. CALCIUM CITRATE [Concomitant]
     Active Substance: CALCIUM CITRATE
  17. AMLODIPINE [Concomitant]
     Active Substance: AMLODIPINE BESYLATE
     Route: 065
  18. PEPCID [Concomitant]
     Active Substance: FAMOTIDINE
     Route: 065
  19. TESTOSTERONE [Concomitant]
     Active Substance: TESTOSTERONE
     Route: 065

REACTIONS (33)
  - Prostate cancer [Unknown]
  - Weight decreased [Unknown]
  - Malaise [Unknown]
  - Blood pressure decreased [Unknown]
  - Feeling of despair [Unknown]
  - Immune system disorder [Unknown]
  - Cortisol increased [Unknown]
  - Tremor [Unknown]
  - Loss of personal independence in daily activities [Unknown]
  - Tooth infection [Unknown]
  - Tooth fracture [Unknown]
  - Stress [Unknown]
  - Prothrombin time prolonged [Unknown]
  - Mood altered [Unknown]
  - Anxiety [Unknown]
  - Eructation [Unknown]
  - Musculoskeletal stiffness [Unknown]
  - Gastrooesophageal reflux disease [Unknown]
  - Bone pain [Unknown]
  - Neck pain [Unknown]
  - Lipohypertrophy [Unknown]
  - Myalgia [Unknown]
  - Decreased appetite [Unknown]
  - Dizziness [Unknown]
  - Pain [Unknown]
  - Back pain [Unknown]
  - Headache [Unknown]
  - Insomnia [Unknown]
  - Fatigue [Unknown]
  - Cortisol decreased [Unknown]
  - Dyspepsia [Unknown]
  - Drug interaction [Unknown]
  - Drug ineffective [Unknown]

NARRATIVE: CASE EVENT DATE: 20240101
